FAERS Safety Report 7469438-2 (Version None)
Quarter: 2011Q2

REPORT INFORMATION
  Report Type: 
  Country: None (occurrence: None)
  Receive Date: 20110429
  Receipt Date: 20110415
  Transmission Date: 20111010
  Serious: Yes (Disabling, Other)
  Sender: FDA-Public Use
  Company Number: 2011-0526

PATIENT
  Age: 62 Year
  Sex: Female

DRUGS (8)
  1. THYPINONE (PROTIRELIN) [Concomitant]
  2. MULTIVITAMIN (MULTIVITAMIN) [Concomitant]
  3. PROGESTERONE [Concomitant]
  4. DYSPORT [Suspect]
     Indication: SKIN WRINKLING
     Dosage: 120 UNITS (120 UNITS, SINGLE CYCLE), INTRAMUSCULAR
     Route: 030
     Dates: start: 20110215, end: 20110215
  5. JUVEDERM (HYALURONIC ACID) [Concomitant]
  6. XYLOCAINE [Concomitant]
  7. RESTTYLANE (HYALURONIC ACID) [Concomitant]
  8. ESTROVEN (HERBAL PREPARATION) [Concomitant]

REACTIONS (9)
  - FATIGUE [None]
  - NAUSEA [None]
  - PRODUCT QUALITY ISSUE [None]
  - URINARY INCONTINENCE [None]
  - DYSPHONIA [None]
  - BODY TEMPERATURE INCREASED [None]
  - NASOPHARYNGITIS [None]
  - VERTIGO [None]
  - FEELING ABNORMAL [None]
